FAERS Safety Report 9618191 (Version 2)
Quarter: 2013Q4

REPORT INFORMATION
  Report Type: Spontaneous
  Country: US (occurrence: US)
  Receive Date: 20131014
  Receipt Date: 20131014
  Transmission Date: 20140711
  Serious: Yes (Hospitalization, Other)
  Sender: FDA-Public Use
  Company Number: US-BIOGENIDEC-2013BI086663

PATIENT
  Sex: Female

DRUGS (1)
  1. AVONEX [Suspect]
     Indication: MULTIPLE SCLEROSIS
     Route: 030

REACTIONS (8)
  - Fall [Recovered/Resolved]
  - General physical health deterioration [Unknown]
  - Progressive multiple sclerosis [Unknown]
  - Depressed level of consciousness [Unknown]
  - Mobility decreased [Unknown]
  - Oxygen saturation decreased [Unknown]
  - Hypophagia [Unknown]
  - Drug ineffective [Unknown]
